FAERS Safety Report 5474118-9 (Version None)
Quarter: 2007Q3

REPORT INFORMATION
  Report Type: 
  Country: None (occurrence: None)
  Receive Date: 20070927
  Receipt Date: 20070927
  Transmission Date: 20080115
  Serious: Yes (Hospitalization)
  Sender: FDA-Public Use
  Company Number: None

PATIENT
  Sex: Female
  Weight: 96.6162 kg

DRUGS (13)
  1. PANITUMUMAB 2.5 MG/KG [Suspect]
     Indication: NEOPLASM MALIGNANT
     Dosage: WKLY FOR 7 WEEKS
     Dates: start: 20070807, end: 20070918
  2. CARBOPLATIN [Suspect]
     Dosage: WKLY FOR 7 WEEKS
     Dates: start: 20070807, end: 20070911
  3. CLINDAMYCIN HCL [Concomitant]
  4. COMPAZINE [Concomitant]
  5. HYTRIN [Concomitant]
  6. LEXAPRO [Concomitant]
  7. SENNA [Concomitant]
  8. TYLENOL [Concomitant]
  9. ZANTAC [Concomitant]
  10. ZOFRAN [Concomitant]
  11. DEXAMETHASONE 0.5MG TAB [Concomitant]
  12. GLYBURIDE [Concomitant]
  13. GTUBE [Concomitant]

REACTIONS (7)
  - DEHYDRATION [None]
  - DIZZINESS [None]
  - DRUG INTOLERANCE [None]
  - NAUSEA [None]
  - ORAL PAIN [None]
  - RADIATION MUCOSITIS [None]
  - VOMITING [None]
